FAERS Safety Report 6464070-1 (Version None)
Quarter: 2009Q4

REPORT INFORMATION
  Report Type: 
  Country: None (occurrence: None)
  Receive Date: 20091201
  Receipt Date: 20091118
  Transmission Date: 20100525
  Serious: Yes (Hospitalization)
  Sender: FDA-Public Use
  Company Number: AT-CELGENEUS-009-21880-09111437

PATIENT
  Sex: Male
  Weight: 80 kg

DRUGS (14)
  1. REVLIMID [Suspect]
     Route: 048
     Dates: end: 20091116
  2. REVLIMID [Suspect]
     Route: 048
     Dates: start: 20090727
  3. FLUDARABINE [Suspect]
     Route: 051
  4. FLUDARABINE [Suspect]
     Route: 051
     Dates: start: 20090722
  5. RITUXIMAB [Suspect]
     Route: 051
  6. RITUXIMAB [Suspect]
     Route: 051
     Dates: start: 20090727
  7. PLAVIX [Concomitant]
     Indication: DRUG USE FOR UNKNOWN INDICATION
     Route: 065
  8. PANTALOC [Concomitant]
     Indication: DRUG USE FOR UNKNOWN INDICATION
     Route: 065
  9. THYREX [Concomitant]
     Indication: DRUG USE FOR UNKNOWN INDICATION
     Route: 065
  10. MONOKET [Concomitant]
     Indication: DRUG USE FOR UNKNOWN INDICATION
     Route: 065
  11. DILDIAZEMRET [Concomitant]
     Indication: DRUG USE FOR UNKNOWN INDICATION
     Route: 065
  12. MOLSIDOLAT [Concomitant]
     Indication: DRUG USE FOR UNKNOWN INDICATION
     Route: 065
     Dates: start: 20090919, end: 20091113
  13. TERBINAFIN [Concomitant]
     Indication: DRUG USE FOR UNKNOWN INDICATION
     Route: 065
     Dates: start: 20091112, end: 20091118
  14. LOVENOX [Concomitant]
     Indication: DRUG USE FOR UNKNOWN INDICATION
     Route: 058
     Dates: start: 20091113, end: 20091119

REACTIONS (1)
  - TUMOUR FLARE [None]
